FAERS Safety Report 5973379-7 (Version None)
Quarter: 2008Q4

REPORT INFORMATION
  Report Type: 
  Country: None (occurrence: None)
  Receive Date: 20081201
  Receipt Date: 20080626
  Transmission Date: 20090506
  Serious: Yes (Other)
  Sender: FDA-Public Use
  Company Number: US-AMGEN-KDL276625

PATIENT
  Sex: Female

DRUGS (3)
  1. ENBREL [Suspect]
     Indication: PSORIASIS
     Route: 058
     Dates: start: 20080401, end: 20080501
  2. ENBREL [Suspect]
     Indication: RHEUMATOID ARTHRITIS
  3. TRIAMCINOLONE [Concomitant]
     Route: 061

REACTIONS (6)
  - ARTHRALGIA [None]
  - BASAL CELL CARCINOMA [None]
  - CHEST DISCOMFORT [None]
  - INJECTION SITE REACTION [None]
  - MALAISE [None]
  - RASH MACULAR [None]
